FAERS Safety Report 8541439-2 (Version None)
Quarter: 2012Q3

REPORT INFORMATION
  Report Type: 
  Country: None (occurrence: None)
  Receive Date: 20120726
  Receipt Date: 20120719
  Transmission Date: 20120928
  Serious: Yes (Other)
  Sender: FDA-Public Use
  Company Number: CA-BAXTER-2012BAX012041

PATIENT
  Age: 83 Year
  Sex: Male

DRUGS (3)
  1. EXTRANEAL [Suspect]
     Route: 033
  2. DIANEAL PD4 SOLUTION WITH 1.5% DEXTROSE AND 2.5 MEQ/L CALCIUM [Suspect]
     Route: 033
  3. INSULIN [Concomitant]

REACTIONS (4)
  - HYPOPHAGIA [None]
  - UNEVALUABLE EVENT [None]
  - FATIGUE [None]
  - POOR QUALITY SLEEP [None]
